FAERS Safety Report 9348521 (Version 1)
Quarter: 2013Q2

REPORT INFORMATION
  Report Type: Spontaneous
  Country: ZA (occurrence: ZA)
  Receive Date: 20130614
  Receipt Date: 20130614
  Transmission Date: 20140414
  Serious: Yes (Other)
  Sender: FDA-Public Use
  Company Number: ZA-AMGEN-ZAFSP2013041727

PATIENT
  Age: 63 Year
  Sex: Female

DRUGS (3)
  1. ENBREL [Suspect]
     Indication: RHEUMATOID ARTHRITIS
     Dosage: 50 MG, WEEKLY
     Route: 058
     Dates: start: 20121025, end: 20130527
  2. PREDNISONE [Concomitant]
     Dosage: ONE TABLET DAILY
     Route: 048
     Dates: start: 2010
  3. METHOTREXATE [Concomitant]
     Dosage: TWO TABLETS ON ALTERNATE DAYS
     Route: 048
     Dates: start: 2010

REACTIONS (1)
  - Breast cancer [Unknown]
